FAERS Safety Report 21737255 (Version 1)
Quarter: 2022Q4

REPORT INFORMATION
  Report Type: Report from Study
  Country: US (occurrence: US)
  Receive Date: 20221216
  Receipt Date: 20221216
  Transmission Date: 20230112
  Serious: Yes (Other)
  Sender: FDA-Public Use
  Company Number: US-SUN PHARMACEUTICAL INDUSTRIES LTD-2022R1-368791

PATIENT
  Age: 23 Year
  Sex: Female

DRUGS (18)
  1. ASPIRIN [Suspect]
     Active Substance: ASPIRIN
     Indication: Non-compaction cardiomyopathy
     Dosage: UNK
     Route: 065
  2. FENTANYL [Suspect]
     Active Substance: FENTANYL
     Dosage: UNK (2 UG/ML, 6 ML EVERY 45 MIN)
     Route: 008
  3. FENTANYL [Suspect]
     Active Substance: FENTANYL
     Indication: Anaesthesia
  4. FENTANYL [Suspect]
     Active Substance: FENTANYL
  5. BUPIVACAINE [Suspect]
     Active Substance: BUPIVACAINE
     Dosage: UNK (0.1%, 6 ML EVERY 45 MIN)
     Route: 008
  6. BUPIVACAINE [Suspect]
     Active Substance: BUPIVACAINE
     Indication: Anaesthesia
  7. BUPIVACAINE [Suspect]
     Active Substance: BUPIVACAINE
  8. LEXAPRO [Suspect]
     Active Substance: ESCITALOPRAM OXALATE
     Indication: Non-compaction cardiomyopathy
     Dosage: UNK
     Route: 065
  9. LIDOCAINE [Suspect]
     Active Substance: LIDOCAINE
     Dosage: UNK (2 ML 2%)
     Route: 065
  10. LIDOCAINE [Suspect]
     Active Substance: LIDOCAINE
     Indication: Anaesthesia
  11. LIDOCAINE [Suspect]
     Active Substance: LIDOCAINE
  12. LIDOCAINE [Suspect]
     Active Substance: LIDOCAINE
     Dosage: UNK (5 ML 2%)
     Route: 065
  13. OXYTOCIN [Suspect]
     Active Substance: OXYTOCIN
     Dosage: UNK
     Route: 042
  14. OXYTOCIN [Suspect]
     Active Substance: OXYTOCIN
     Indication: Labour induction
  15. OXYTOCIN [Suspect]
     Active Substance: OXYTOCIN
  16. PHENYLEPHRINE [Suspect]
     Active Substance: PHENYLEPHRINE HYDROCHLORIDE
     Dosage: UNK
     Route: 065
  17. PHENYLEPHRINE [Suspect]
     Active Substance: PHENYLEPHRINE HYDROCHLORIDE
     Indication: Product used for unknown indication
  18. PHENYLEPHRINE [Suspect]
     Active Substance: PHENYLEPHRINE HYDROCHLORIDE

REACTIONS (3)
  - Exposure during pregnancy [Unknown]
  - Foetal growth restriction [Unknown]
  - Live birth [Unknown]
